FAERS Safety Report 6951929-1 (Version None)
Quarter: 2010Q3

REPORT INFORMATION
  Report Type: 
  Country: None (occurrence: None)
  Receive Date: 20100829
  Receipt Date: 20100422
  Transmission Date: 20110219
  Serious: No
  Sender: FDA-Public Use
  Company Number: US-ABBOTT-10P-163-0640158-00

PATIENT
  Sex: Male

DRUGS (6)
  1. NIASPAN [Suspect]
     Indication: HIGH DENSITY LIPOPROTEIN DECREASED
     Route: 048
     Dates: start: 20100412
  2. NIASPAN [Suspect]
     Route: 048
     Dates: start: 20100405, end: 20100411
  3. MOBIC [Concomitant]
     Indication: PRODUCT USED FOR UNKNOWN INDICATION
  4. LORTAB [Concomitant]
     Indication: PRODUCT USED FOR UNKNOWN INDICATION
  5. GARLIC PILL [Concomitant]
     Indication: PRODUCT USED FOR UNKNOWN INDICATION
  6. EPIDURALS [Concomitant]
     Indication: ARTHRALGIA

REACTIONS (2)
  - ERYTHEMA [None]
  - FLUSHING [None]
